FAERS Safety Report 24619685 (Version 1)
Quarter: 2024Q4

REPORT INFORMATION
  Report Type: Spontaneous
  Country: US (occurrence: US)
  Receive Date: 20241114
  Receipt Date: 20241114
  Transmission Date: 20250114
  Serious: No
  Sender: CURRAX PHARMACEUTICALS
  Company Number: CRAX2400285

PATIENT
  Sex: Female

DRUGS (1)
  1. CONTRAVE [Suspect]
     Active Substance: BUPROPION HYDROCHLORIDE\NALTREXONE HYDROCHLORIDE
     Indication: Product used for unknown indication
     Dosage: STRENGTH: 8/90 MG, ONE PILL A DAY
     Route: 048
     Dates: start: 20240310, end: 2024

REACTIONS (5)
  - Abdominal discomfort [Unknown]
  - Illness [Unknown]
  - Anxiety [Unknown]
  - Feeling jittery [Unknown]
  - Irritability [Unknown]

NARRATIVE: CASE EVENT DATE: 20240301
